FAERS Safety Report 4640652-4 (Version None)
Quarter: 2005Q2

REPORT INFORMATION
  Report Type: 
  Country: None (occurrence: None)
  Receive Date: 20050419
  Receipt Date: 20050401
  Transmission Date: 20051028
  Serious: Yes (Death)
  Sender: FDA-Public Use
  Company Number: DSA_26260_2005

PATIENT
  Age: 76 Year
  Sex: Male

DRUGS (22)
  1. ENALAPRIL MALEATE [Suspect]
     Dosage: DF PO
     Route: 048
  2. IKOREL [Suspect]
     Indication: ANGINA PECTORIS
     Dosage: 30 MG BID PO
     Route: 048
     Dates: start: 20030701, end: 20050313
  3. IKOREL [Suspect]
     Indication: ANGINA PECTORIS
     Dosage: 20 MG
  4. IKOREL [Suspect]
     Indication: ANGINA PECTORIS
     Dosage: 40 MG
  5. METRONIDAZOLE [Suspect]
     Dosage: 1500 MG IV
     Route: 042
  6. METRONIDAZOLE [Suspect]
     Dosage: 1200 MG PO
     Route: 048
  7. AMOXICILLIN [Suspect]
     Dosage: 1500 MG IV
     Route: 042
  8. AMOXICILLIN [Suspect]
     Dosage: 1500 MG PO
     Route: 048
  9. ACETAMINOPHEN [Concomitant]
  10. ALBUTEROL [Concomitant]
  11. ASPIRIN [Concomitant]
  12. BECLOMETHASONE DIPROPIONATE [Concomitant]
  13. CLOPIDOGREL BISULFATE [Concomitant]
  14. DIACETYLMORPHINE [Concomitant]
  15. DIGOXIN [Concomitant]
  16. ANGITIL - SLOW RELEASE [Concomitant]
  17. ENOXAPARIN SODIUM [Concomitant]
  18. FUROSEMIDE [Concomitant]
  19. IPATROPIUM BROMIDE [Concomitant]
  20. LANSOPRAZOLE [Concomitant]
  21. LISINOPRIL [Concomitant]
  22. METOCLOPRAMIDE [Concomitant]

REACTIONS (3)
  - MOUTH ULCERATION [None]
  - MYOCARDIAL INFARCTION [None]
  - TONGUE ULCERATION [None]
